FAERS Safety Report 13287042 (Version 3)
Quarter: 2017Q2

REPORT INFORMATION
  Report Type: Spontaneous
  Country: US (occurrence: US)
  Receive Date: 20170302
  Receipt Date: 20170508
  Transmission Date: 20170830
  Serious: Yes (Death, Other)
  Sender: FDA-Public Use
  Company Number: US-TEVA-743912USA

PATIENT
  Sex: Male
  Weight: 106 kg

DRUGS (12)
  1. CLOZAPINE. [Suspect]
     Active Substance: CLOZAPINE
     Indication: BIPOLAR DISORDER
     Dosage: 250 MILLIGRAM DAILY; 100 MG +25 MG
     Route: 065
     Dates: start: 20150807, end: 20170222
  2. RISPERIDONE. [Concomitant]
     Active Substance: RISPERIDONE
  3. CELECOXIB. [Concomitant]
     Active Substance: CELECOXIB
     Dates: end: 20170222
  4. ATORVASTATIN [Concomitant]
     Active Substance: ATORVASTATIN
     Indication: BLOOD CHOLESTEROL INCREASED
     Dates: end: 20170222
  5. GABAPENTIN. [Concomitant]
     Active Substance: GABAPENTIN
     Dates: end: 20170222
  6. CLOZAPINE. [Suspect]
     Active Substance: CLOZAPINE
     Indication: SCHIZOAFFECTIVE DISORDER
     Dosage: 250 MILLIGRAM DAILY; 100 MG +25 MG
     Route: 065
     Dates: start: 20150807, end: 20170222
  7. GEMFIBROZIL. [Concomitant]
     Active Substance: GEMFIBROZIL
     Indication: DIABETES MELLITUS
     Dates: end: 20170222
  8. PANTOPRAZOLE [Concomitant]
     Active Substance: PANTOPRAZOLE
     Indication: GASTROOESOPHAGEAL REFLUX DISEASE
     Dates: end: 20170222
  9. LITHIUM CARBONATE. [Concomitant]
     Active Substance: LITHIUM CARBONATE
     Dates: end: 20170222
  10. BUPROPION. [Concomitant]
     Active Substance: BUPROPION
     Dates: end: 20170222
  11. ALPRAZOLAM. [Concomitant]
     Active Substance: ALPRAZOLAM
     Dates: end: 20170222
  12. ESCITALOPRAM [Concomitant]
     Active Substance: ESCITALOPRAM OXALATE
     Dates: end: 20170222

REACTIONS (2)
  - Sudden death [Fatal]
  - Drug use disorder [Unknown]
